FAERS Safety Report 21239616 (Version 1)
Quarter: 2022Q3

REPORT INFORMATION
  Report Type: Spontaneous
  Country: US (occurrence: None)
  Receive Date: 20220819
  Receipt Date: 20220819
  Transmission Date: 20221026
  Serious: Yes (Hospitalization)
  Sender: FDA-Public Use
  Company Number: None

PATIENT
  Sex: Male
  Weight: 77.11 kg

DRUGS (2)
  1. ABIRATERONE ACETATE [Suspect]
     Active Substance: ABIRATERONE ACETATE
     Indication: Rectosigmoid cancer
     Dosage: 1000MG DAILY ORAL
     Route: 048
     Dates: start: 202004, end: 202208
  2. BICALUTAMIDE [Concomitant]
     Active Substance: BICALUTAMIDE

REACTIONS (2)
  - COVID-19 [None]
  - Therapy interrupted [None]
